FAERS Safety Report 8464531-X (Version None)
Quarter: 2012Q2

REPORT INFORMATION
  Report Type: 
  Country: None (occurrence: None)
  Receive Date: 20120620
  Receipt Date: 20120620
  Transmission Date: 20120825
  Serious: Yes (Hospitalization)
  Sender: FDA-Public Use
  Company Number: None

PATIENT
  Sex: Male

DRUGS (3)
  1. ELOXATIN [Suspect]
     Indication: RECTAL CANCER
     Dosage: 175 MG IVPB
     Route: 042
     Dates: start: 20120507
  2. ELOXATIN [Suspect]
     Indication: RECTAL CANCER
     Dosage: 175 MG IVPB
     Route: 042
     Dates: start: 20120521
  3. ELOXATIN [Suspect]
     Indication: RECTAL CANCER
     Dosage: 175 MG IVPB
     Route: 042
     Dates: start: 20120611

REACTIONS (5)
  - NAUSEA [None]
  - TACHYCARDIA [None]
  - HYPERHIDROSIS [None]
  - ELECTROCARDIOGRAM ST SEGMENT DEPRESSION [None]
  - VOMITING [None]
